FAERS Safety Report 5858172-8 (Version None)
Quarter: 2008Q3

REPORT INFORMATION
  Report Type: 
  Country: None (occurrence: None)
  Receive Date: 20080826
  Receipt Date: 20080822
  Transmission Date: 20090109
  Serious: Yes (Death)
  Sender: FDA-Public Use
  Company Number: A0715056A

PATIENT
  Age: 58 Year
  Sex: Male
  Weight: 88.6 kg

DRUGS (8)
  1. AVANDIA [Suspect]
     Dosage: 4MG TWICE PER DAY
     Route: 048
     Dates: start: 20060101, end: 20070311
  2. INSULIN INSULATARD NPH NORDISK [Concomitant]
     Dates: start: 20061102, end: 20070101
  3. NOVOLIN [Concomitant]
     Dates: start: 20060517, end: 20070101
  4. METOPROLOL TARTRATE [Concomitant]
     Dates: start: 20020101, end: 20070311
  5. LOVASTATIN [Concomitant]
     Dates: start: 20020101, end: 20070311
  6. SIMVASTATIN [Concomitant]
     Dates: start: 20020101, end: 20070311
  7. NITROGLYCERIN [Concomitant]
     Dates: start: 20020101, end: 20070311
  8. NITRO-DUR [Concomitant]
     Dates: start: 20020101, end: 20070311

REACTIONS (1)
  - MYOCARDIAL INFARCTION [None]
